FAERS Safety Report 16349762 (Version 6)
Quarter: 2019Q4

REPORT INFORMATION
  Report Type: Report from Study
  Country: CA (occurrence: CA)
  Receive Date: 20190523
  Receipt Date: 20191213
  Transmission Date: 20200122
  Serious: Yes (Hospitalization, Other)
  Sender: FDA-Public Use
  Company Number: CA-TAKEDA-2019TUS030865

PATIENT
  Age: 81 Year
  Sex: Male

DRUGS (2)
  1. VEDOLIZUMAB [Suspect]
     Active Substance: VEDOLIZUMAB
     Indication: CROHN^S DISEASE
     Dosage: 300 MILLIGRAM
     Route: 042
     Dates: start: 20181122
  2. VEDOLIZUMAB [Suspect]
     Active Substance: VEDOLIZUMAB
     Dosage: 300 MILLIGRAM
     Route: 042

REACTIONS (8)
  - Lower respiratory tract infection [Unknown]
  - Respiratory tract congestion [Unknown]
  - Productive cough [Unknown]
  - Pneumonia [Unknown]
  - Compression fracture [Unknown]
  - Cardiac failure congestive [Unknown]
  - Malaise [Unknown]
  - Back pain [Unknown]
